FAERS Safety Report 7498354-5 (Version None)
Quarter: 2011Q2

REPORT INFORMATION
  Report Type: 
  Country: None (occurrence: None)
  Receive Date: 20110524
  Receipt Date: 20101227
  Transmission Date: 20111010
  Serious: Yes (Hospitalization, Other)
  Sender: FDA-Public Use
  Company Number: US-BAYER-201016601NA

PATIENT
  Age: 40 Year
  Sex: Female
  Weight: 116.82 kg

DRUGS (7)
  1. YASMIN [Suspect]
     Indication: CONTRACEPTION
     Route: 048
     Dates: start: 20060621, end: 20080327
  2. AMLODIPINE W/BENAZEPRIL [Concomitant]
  3. LISINOPRIL [Concomitant]
     Route: 065
  4. SYNTHROID [Concomitant]
     Route: 065
  5. AMLODIPINE W/BENAZEPRIL [Concomitant]
     Indication: HYPERTENSION
  6. VELIVET [Concomitant]
     Dosage: EVERY 28 DAYS. 12 REFILLS WERE RENEWED. 16DEC2009.
     Route: 048
  7. TRIAMTERENE [Concomitant]
     Route: 065

REACTIONS (5)
  - NAUSEA [None]
  - CHOLELITHIASIS [None]
  - VOMITING [None]
  - ABDOMINAL PAIN UPPER [None]
  - ABDOMINAL PAIN [None]
